FAERS Safety Report 8170793-9 (Version None)
Quarter: 2012Q1

REPORT INFORMATION
  Report Type: 
  Country: None (occurrence: None)
  Receive Date: 20120104
  Receipt Date: 20111208
  Transmission Date: 20120608
  Serious: No
  Sender: FDA-Public Use
  Company Number: 2011HGS-002944

PATIENT
  Sex: Female

DRUGS (2)
  1. METHOTREXATE [Concomitant]
  2. BENLYSTA [Suspect]
     Dosage: INTRAVENOUS DRIP
     Route: 041

REACTIONS (2)
  - HEADACHE [None]
  - PLATELET COUNT DECREASED [None]
